FAERS Safety Report 10075389 (Version 1)
Quarter: 2014Q2

REPORT INFORMATION
  Report Type: Report from Study
  Country: US (occurrence: US)
  Receive Date: 20140414
  Receipt Date: 20140414
  Transmission Date: 20141212
  Serious: Yes (Hospitalization)
  Sender: FDA-Public Use
  Company Number: US-ROCHE-1368057

PATIENT
  Sex: Male

DRUGS (33)
  1. GANCICLOVIR [Suspect]
     Indication: CYTOMEGALOVIRUS VIRAEMIA
     Route: 042
  2. AMLODIPINE [Concomitant]
     Route: 048
  3. CALCIUM CARBONATE [Concomitant]
     Route: 048
  4. CITALOPRAM [Concomitant]
     Route: 048
  5. FAMCICLOVIR [Concomitant]
     Route: 048
  6. FILGRASTIM [Concomitant]
     Route: 058
  7. GABAPENTIN [Concomitant]
     Route: 048
  8. LORAZEPAM [Concomitant]
     Route: 048
  9. MAGNESIUM OXIDE [Concomitant]
     Route: 048
  10. MELATONIN [Concomitant]
     Route: 048
  11. NYSTATIN [Concomitant]
     Route: 065
  12. OMEPRAZOLE [Concomitant]
     Route: 048
  13. POTASSIUM CHLORIDE [Concomitant]
     Route: 048
  14. TACROLIMUS [Concomitant]
     Route: 048
  15. URSODIOL [Concomitant]
     Route: 048
  16. MEPRON (UNITED STATES) [Concomitant]
     Route: 065
  17. FLUCONAZOLE [Concomitant]
     Route: 048
  18. SOLU-MEDROL [Concomitant]
     Route: 042
  19. CAPTOPRIL [Concomitant]
     Route: 048
  20. MELATONIN [Concomitant]
     Dosage: EVERY BED TIME
     Route: 048
  21. LOMOTIL (UNITED STATES) [Concomitant]
     Route: 048
  22. OCEAN NASAL SPRAY [Concomitant]
     Route: 065
  23. BENADRYL (UNITED STATES) [Concomitant]
     Route: 048
  24. TYLENOL [Concomitant]
     Route: 048
  25. OXYCODONE [Concomitant]
     Route: 048
  26. GUAIFENESIN [Concomitant]
     Route: 065
  27. ZOFRAN [Concomitant]
     Route: 042
  28. ALBUTEROL [Concomitant]
     Route: 065
  29. IPRATROPIUM [Concomitant]
     Route: 065
  30. ATIVAN [Concomitant]
     Route: 042
  31. ALBUTEROL [Concomitant]
     Route: 065
  32. IMODIUM [Concomitant]
     Route: 048
  33. CEFEPIME [Concomitant]

REACTIONS (19)
  - Tachypnoea [Unknown]
  - Respiratory distress [Unknown]
  - Pyrexia [Unknown]
  - Heart sounds abnormal [Unknown]
  - Idiopathic pneumonia syndrome [Unknown]
  - Blood lactate dehydrogenase increased [Unknown]
  - Hypoxia [Unknown]
  - Interstitial lung disease [Unknown]
  - Arteriosclerosis coronary artery [Unknown]
  - Mitral valve disease [Unknown]
  - Pericardial effusion [Unknown]
  - Spinal deformity [Unknown]
  - Mitral valve calcification [Unknown]
  - Dry mouth [Unknown]
  - Dry eye [Unknown]
  - Back pain [Unknown]
  - Skin discolouration [Unknown]
  - Hypokalaemia [Unknown]
  - Hypomagnesaemia [Unknown]
